FAERS Safety Report 9606583 (Version 1)
Quarter: 2013Q4

REPORT INFORMATION
  Report Type: Spontaneous
  Country: US (occurrence: US)
  Receive Date: 20131008
  Receipt Date: 20131008
  Transmission Date: 20140711
  Serious: No
  Sender: FDA-Public Use
  Company Number: US-AMGEN-USASP2013059625

PATIENT
  Age: 60 Year
  Sex: Female

DRUGS (5)
  1. PROLIA [Suspect]
     Indication: OSTEOPOROSIS POSTMENOPAUSAL
     Dosage: UNK
     Route: 065
     Dates: start: 2013
  2. VITAMIN D                          /00107901/ [Concomitant]
     Dosage: UNK
     Route: 065
  3. CALCIUM [Concomitant]
     Dosage: UNK
     Route: 065
  4. COQ10                              /00517201/ [Concomitant]
     Dosage: UNK
     Route: 065
  5. BIOTIN [Concomitant]
     Dosage: UNK
     Route: 065

REACTIONS (3)
  - Neck pain [Recovered/Resolved]
  - Pain in jaw [Recovered/Resolved]
  - Back pain [Recovered/Resolved]
